FAERS Safety Report 24449851 (Version 1)
Quarter: 2024Q4

REPORT INFORMATION
  Report Type: Report from Study
  Country: US (occurrence: US)
  Receive Date: 20241017
  Receipt Date: 20241017
  Transmission Date: 20250115
  Serious: Yes (Other)
  Sender: NOVARTIS
  Company Number: US-002147023-NVSC2024US164724

PATIENT

DRUGS (1)
  1. PIQRAY [Suspect]
     Active Substance: ALPELISIB
     Indication: Product used for unknown indication
     Dosage: UNK
     Route: 065

REACTIONS (6)
  - Neoplasm malignant [Unknown]
  - Alopecia [Unknown]
  - Feeling of despair [Unknown]
  - Drug ineffective [Unknown]
  - Stomatitis [Unknown]
  - Abdominal distension [Unknown]
